FAERS Safety Report 7977459-6 (Version None)
Quarter: 2011Q4

REPORT INFORMATION
  Report Type: 
  Country: None (occurrence: None)
  Receive Date: 20111214
  Receipt Date: 20111117
  Transmission Date: 20120403
  Serious: No
  Sender: FDA-Public Use
  Company Number: US-AMGEN-USASP2011060693

PATIENT
  Age: 43 Year
  Sex: Female

DRUGS (1)
  1. ENBREL [Suspect]
     Indication: RHEUMATOID ARTHRITIS
     Dosage: 50 MG, QWK
     Route: 058

REACTIONS (9)
  - PYREXIA [None]
  - SINUSITIS [None]
  - INJECTION SITE PAIN [None]
  - HEADACHE [None]
  - FALL [None]
  - BRONCHITIS [None]
  - PAIN IN EXTREMITY [None]
  - MOBILITY DECREASED [None]
  - PRODUCTIVE COUGH [None]
